FAERS Safety Report 15457067 (Version 1)
Quarter: 2018Q4

REPORT INFORMATION
  Report Type: Spontaneous
  Country: TR (occurrence: TR)
  Receive Date: 20181002
  Receipt Date: 20181002
  Transmission Date: 20190204
  Serious: Yes (Other)
  Sender: FDA-Public Use
  Company Number: TR-FRESENIUS KABI-FK201810221

PATIENT
  Age: 3 Hour

DRUGS (2)
  1. LIDOCAINE 2% (MANUFACTURER UNKNOWN) [Suspect]
     Active Substance: LIDOCAINE
     Indication: PRODUCT USED FOR UNKNOWN INDICATION
     Dosage: 8ML EPIDURAL VIGILANCE TEST WAS PERFORMED BY DILUTING 10ML OF LIDOCAINE 2 PERCENT/ADMINISTERED TO TH
     Route: 064
  2. PRILOCAINE [Suspect]
     Active Substance: PRILOCAINE
     Indication: PRODUCT USED FOR UNKNOWN INDICATION
     Dosage: APPLIED LOCALLY AT THE DELIVERY/ADMINISTERED BEFORE EPISIOTOMY DURING THE DELIVERY
     Route: 065

REACTIONS (2)
  - Methaemoglobinaemia [Recovering/Resolving]
  - Foetal exposure during pregnancy [Recovering/Resolving]
